FAERS Safety Report 8826246 (Version 1)
Quarter: 2012Q4

REPORT INFORMATION
  Report Type: 
  Country: US (occurrence: US)
  Receive Date: 20121008
  Receipt Date: 20121008
  Transmission Date: 20130627
  Serious: Yes (Other)
  Sender: FDA-Public Use
  Company Number: US-JNJFOC-20121000783

PATIENT
  Sex: Female
  Weight: 58.06 kg

DRUGS (8)
  1. TYLENOL [Suspect]
     Route: 065
  2. TYLENOL [Suspect]
     Indication: ARTHRALGIA
     Route: 065
     Dates: start: 2012
  3. CELEBREX [Suspect]
     Indication: PAIN IN EXTREMITY
     Route: 048
     Dates: start: 2012
  4. CELEBREX [Suspect]
     Indication: PAIN IN EXTREMITY
     Route: 048
     Dates: start: 2002, end: 2012
  5. ZOLOFT [Suspect]
     Indication: DEPRESSION
     Dosage: cut 100 mg to 50 mg in the morning and 50 mg at night
     Route: 048
     Dates: start: 2002
  6. ZOLOFT [Suspect]
     Indication: ANXIETY
     Dosage: cut 100 mg to 50 mg in the morning and 50 mg at night
     Route: 048
     Dates: start: 2002
  7. URSODIOL [Concomitant]
     Indication: BILIARY CIRRHOSIS PRIMARY
  8. PREDNISONE [Concomitant]
     Indication: PAIN

REACTIONS (1)
  - Gastric haemorrhage [Unknown]
